FAERS Safety Report 5299628-9 (Version None)
Quarter: 2007Q1

REPORT INFORMATION
  Report Type: 
  Country: None (occurrence: None)
  Receive Date: 20070201
  Receipt Date: 20061102
  Transmission Date: 20070707
  Serious: No
  Sender: FDA-Public Use
  Company Number: 2006PV024423

PATIENT
  Age: 41 Year
  Sex: Female
  Weight: 107.5025 kg

DRUGS (10)
  1. BYETTA [Suspect]
     Indication: INSULIN RESISTANT DIABETES
     Dosage: SEE IMAGE
     Route: 058
     Dates: start: 20060801, end: 20060901
  2. BYETTA [Suspect]
     Indication: INSULIN RESISTANT DIABETES
     Dosage: SEE IMAGE
     Route: 058
     Dates: start: 20060901, end: 20061031
  3. GLUCPHAGE ^BRISTOL-MYERS SQUIBB^ [Concomitant]
  4. ZONEGRAN [Concomitant]
  5. ACIPHEX [Concomitant]
  6. IBUPROFEN [Concomitant]
  7. FLEXERIL [Concomitant]
  8. ZOMIG [Concomitant]
  9. ASPIRIN [Concomitant]
  10. HORMONE PATCH [Concomitant]

REACTIONS (8)
  - BLOOD CHOLESTEROL INCREASED [None]
  - BLOOD DISORDER [None]
  - C-REACTIVE PROTEIN INCREASED [None]
  - CARDIAC VENTRICULAR DISORDER [None]
  - CHEST PAIN [None]
  - INFLAMMATION [None]
  - PALPITATIONS [None]
  - ROAD TRAFFIC ACCIDENT [None]
